FAERS Safety Report 8215861-8 (Version None)
Quarter: 2012Q1

REPORT INFORMATION
  Report Type: 
  Country: None (occurrence: None)
  Receive Date: 20120316
  Receipt Date: 20120307
  Transmission Date: 20120608
  Serious: Yes (Hospitalization, Other)
  Sender: FDA-Public Use
  Company Number: US-MERCK-1201USA00987

PATIENT
  Age: 49 Year
  Sex: Female

DRUGS (1)
  1. FOSAMAX [Suspect]
     Indication: OSTEOPOROSIS
     Route: 048
     Dates: start: 19980101, end: 20111001

REACTIONS (12)
  - TRIGGER FINGER [None]
  - BLOOD PRESSURE DECREASED [None]
  - ADVERSE EVENT [None]
  - CYST [None]
  - HYPERLIPIDAEMIA [None]
  - ARTHRALGIA [None]
  - BUNION [None]
  - BLOOD CHOLESTEROL INCREASED [None]
  - UTERINE DISORDER [None]
  - LIMB DISCOMFORT [None]
  - FEMUR FRACTURE [None]
  - FOOT FRACTURE [None]
